FAERS Safety Report 5071428-4 (Version None)
Quarter: 2006Q3

REPORT INFORMATION
  Report Type: 
  Country: None (occurrence: None)
  Receive Date: 20060803
  Receipt Date: 20060803
  Transmission Date: 20061208
  Serious: Yes (Life-Threatening)
  Sender: FDA-Public Use
  Company Number: None

PATIENT
  Sex: Female
  Weight: 15 kg

DRUGS (1)
  1. ONCASPAR [Suspect]
     Indication: ACUTE LYMPHOCYTIC LEUKAEMIA
     Dosage: 2500 UNITS/M2-1525 UNITS ONCE IM [3 DOSES]
     Route: 042
     Dates: start: 20060607, end: 20060802

REACTIONS (6)
  - COUGH [None]
  - EYE SWELLING [None]
  - SWELLING FACE [None]
  - URTICARIA [None]
  - VAGINAL SWELLING [None]
  - VOMITING [None]
